FAERS Safety Report 8544034-4 (Version None)
Quarter: 2012Q3

REPORT INFORMATION
  Report Type: 
  Country: None (occurrence: None)
  Receive Date: 20120727
  Receipt Date: 20120723
  Transmission Date: 20120928
  Serious: Yes (Hospitalization, Other)
  Sender: FDA-Public Use
  Company Number: US-PFIZER INC-2010130338

PATIENT
  Sex: Male
  Weight: 100 kg

DRUGS (7)
  1. LYRICA [Suspect]
     Indication: BACK PAIN
     Dosage: 150 MG, 2X/DAY
     Route: 048
     Dates: start: 20100801
  2. LISINOPRIL [Concomitant]
     Indication: HYPERTENSION
     Dosage: 40 MG DAILY
     Route: 048
     Dates: start: 20050101
  3. COLACE [Concomitant]
     Indication: CONSTIPATION
     Dosage: UNK
  4. TOPROL-XL [Concomitant]
     Indication: HYPERTENSION
     Dosage: 50 MG DAILY
     Route: 048
     Dates: start: 20050101
  5. FIBERCON [Concomitant]
     Indication: CONSTIPATION
     Dosage: FOUR CAPSULES
  6. LYRICA [Suspect]
     Indication: POST LAMINECTOMY SYNDROME
     Dosage: 100 MG, 2X/DAY
     Route: 048
     Dates: start: 20100801, end: 20100801
  7. LYRICA [Suspect]
     Dosage: 150 MG, 2X/DAY
     Route: 048
     Dates: start: 20101001, end: 20101001

REACTIONS (14)
  - RENAL FAILURE ACUTE [None]
  - BLADDER DISORDER [None]
  - INTERVERTEBRAL DISC PROTRUSION [None]
  - URINARY TRACT INFECTION [None]
  - TREMOR [None]
  - MUSCLE ATROPHY [None]
  - BLOOD POTASSIUM INCREASED [None]
  - SPINAL COLUMN STENOSIS [None]
  - PARAPLEGIA [None]
  - FEELING ABNORMAL [None]
  - EXTRADURAL HAEMATOMA [None]
  - SPINAL CORD INJURY [None]
  - DYSURIA [None]
  - IRRITABLE BOWEL SYNDROME [None]
